FAERS Safety Report 20308766 (Version 5)
Quarter: 2022Q3

REPORT INFORMATION
  Report Type: Report from Study
  Country: US (occurrence: US)
  Receive Date: 20220107
  Receipt Date: 20220725
  Transmission Date: 20221026
  Serious: Yes (Hospitalization, Other)
  Sender: FDA-Public Use
  Company Number: US-NOVARTISTESTPH-NVSC2022US002905

PATIENT
  Age: 78 Year
  Sex: Male

DRUGS (1)
  1. ENTRESTO [Suspect]
     Active Substance: SACUBITRIL\VALSARTAN
     Indication: Product used for unknown indication
     Dosage: 100 MG (49/51 MG), BID
     Route: 048
     Dates: start: 202108

REACTIONS (18)
  - Heart rate increased [Recovered/Resolved]
  - Procedural haemorrhage [Unknown]
  - Dehydration [Unknown]
  - COVID-19 [Unknown]
  - Pyrexia [Unknown]
  - Headache [Unknown]
  - Oropharyngeal pain [Unknown]
  - Muscular weakness [Not Recovered/Not Resolved]
  - Pain in extremity [Unknown]
  - Myalgia [Unknown]
  - Fatigue [Unknown]
  - Insomnia [Not Recovered/Not Resolved]
  - Upper-airway cough syndrome [Not Recovered/Not Resolved]
  - Cough [Unknown]
  - Heart rate increased [Recovered/Resolved]
  - Blood iron decreased [Unknown]
  - Prostatic disorder [Unknown]
  - Speech disorder [Unknown]

NARRATIVE: CASE EVENT DATE: 20220306
